FAERS Safety Report 5446473-7 (Version None)
Quarter: 2007Q3

REPORT INFORMATION
  Report Type: 
  Country: None (occurrence: None)
  Receive Date: 20070907
  Receipt Date: 20070824
  Transmission Date: 20080115
  Serious: Yes (Death)
  Sender: FDA-Public Use
  Company Number: CN-ROCHE-509169

PATIENT
  Age: 52 Year
  Sex: Male

DRUGS (5)
  1. ROCEPHIN [Suspect]
     Indication: DIARRHOEA
     Dosage: ROUTE REPORTED AS I.V.GTT.
     Route: 042
     Dates: start: 20070729, end: 20070729
  2. RINGER'S INJECTION [Suspect]
     Indication: DIARRHOEA
     Dosage: ROUTE REPORTED AS : I.V.GTT
     Route: 042
     Dates: start: 20070729, end: 20070729
  3. UNSPECIFIED DRUG [Concomitant]
  4. UNSPECIFIED DRUG [Concomitant]
  5. METOCLOPRAMIDE [Concomitant]
     Indication: DIARRHOEA
     Dates: start: 20070729, end: 20070729

REACTIONS (7)
  - ABDOMINAL PAIN UPPER [None]
  - DIARRHOEA [None]
  - DYSPNOEA [None]
  - MYOCARDIAL INFARCTION [None]
  - RESPIRATORY ARREST [None]
  - SHOCK [None]
  - THROMBOSIS [None]
